FAERS Safety Report 19637821 (Version 1)
Quarter: 2021Q3

REPORT INFORMATION
  Report Type: Spontaneous
  Country: FR (occurrence: FR)
  Receive Date: 20210730
  Receipt Date: 20210730
  Transmission Date: 20211014
  Serious: Yes (Life-Threatening, Other)
  Sender: FDA-Public Use
  Company Number: FR-SA-2021SA251334

PATIENT
  Age: 35 Year
  Sex: Female

DRUGS (5)
  1. ZOLADEX [Concomitant]
     Active Substance: GOSERELIN ACETATE
  2. LETROZOLE. [Concomitant]
     Active Substance: LETROZOLE
  3. DOCETAXEL. [Suspect]
     Active Substance: DOCETAXEL
     Indication: HORMONE RECEPTOR POSITIVE BREAST CANCER
     Route: 042
     Dates: start: 20190104, end: 20190621
  4. ENDOXAN [Suspect]
     Active Substance: CYCLOPHOSPHAMIDE
     Indication: HORMONE RECEPTOR POSITIVE BREAST CANCER
     Route: 042
     Dates: start: 20190104, end: 20190621
  5. EPIRUBICINE WINTHROP [Suspect]
     Active Substance: EPIRUBICIN
     Indication: HORMONE RECEPTOR POSITIVE BREAST CANCER
     Route: 042
     Dates: start: 20190104, end: 20190621

REACTIONS (1)
  - Acute promyelocytic leukaemia [Not Recovered/Not Resolved]

NARRATIVE: CASE EVENT DATE: 20210629
